FAERS Safety Report 5705813-1 (Version None)
Quarter: 2008Q2

REPORT INFORMATION
  Report Type: 
  Country: None (occurrence: None)
  Receive Date: 20080415
  Receipt Date: 20080410
  Transmission Date: 20081010
  Serious: No
  Sender: FDA-Public Use
  Company Number: US-GILEAD-2008-0015991

PATIENT

DRUGS (14)
  1. LETAIRIS [Suspect]
     Dates: start: 20080320, end: 20080410
  2. LASIX [Concomitant]
     Indication: OEDEMA
  3. PREDNISONE [Concomitant]
     Indication: SYSTEMIC LUPUS ERYTHEMATOSUS
  4. NIFEDIPINE [Concomitant]
  5. NEXIUM [Concomitant]
  6. LYRICA [Concomitant]
  7. OXYBUTYNIN CHLORIDE [Concomitant]
  8. FOSAMAX [Concomitant]
  9. CALCIUM [Concomitant]
  10. LORTAB [Concomitant]
  11. METHACARBAMOL [Concomitant]
  12. PERCOCET [Concomitant]
  13. REMERON [Concomitant]
  14. LEXAPRO [Concomitant]
     Indication: DEPRESSION

REACTIONS (4)
  - DYSPHAGIA [None]
  - DYSPNOEA [None]
  - LOCAL SWELLING [None]
  - OEDEMA PERIPHERAL [None]
